FAERS Safety Report 8270180-9 (Version None)
Quarter: 2012Q2

REPORT INFORMATION
  Report Type: 
  Country: None (occurrence: None)
  Receive Date: 20120410
  Receipt Date: 20120405
  Transmission Date: 20120825
  Serious: Yes (Other)
  Sender: FDA-Public Use
  Company Number: PHEH2009US16946

PATIENT
  Sex: Female
  Weight: 63.492 kg

DRUGS (9)
  1. GABAPENTIN [Concomitant]
  2. FORTICAL /KOR/ [Concomitant]
  3. ZOMETA [Suspect]
     Dosage: 4 MG, QMO
     Dates: start: 20010101, end: 20070101
  4. FEMARA [Concomitant]
  5. WARFARIN SODIUM [Concomitant]
  6. AREDIA [Suspect]
     Dosage: 90 MG, UNK
  7. CIPROFLOXACIN HYDROCHLORIDE [Concomitant]
  8. MIACALCIN [Concomitant]
  9. FLAGYL [Concomitant]

REACTIONS (51)
  - CAROTID ARTERY STENOSIS [None]
  - EXOSTOSIS [None]
  - PRIMARY SEQUESTRUM [None]
  - DIZZINESS [None]
  - BACK PAIN [None]
  - PALPITATIONS [None]
  - METASTASES TO SPINE [None]
  - DIVERTICULITIS [None]
  - COLONIC POLYP [None]
  - OSTEOARTHRITIS [None]
  - TOOTH DISORDER [None]
  - ANXIETY [None]
  - SPINAL OSTEOARTHRITIS [None]
  - OSTEOPOROSIS [None]
  - OSTEOPENIA [None]
  - QRS AXIS ABNORMAL [None]
  - HYPERLIPIDAEMIA [None]
  - OSTEONECROSIS OF JAW [None]
  - PAIN [None]
  - INTERVERTEBRAL DISC DEGENERATION [None]
  - DYSPHAGIA [None]
  - CERUMEN IMPACTION [None]
  - NYSTAGMUS [None]
  - DIVERTICULUM [None]
  - MUSCULOSKELETAL PAIN [None]
  - BLOOD CHOLESTEROL INCREASED [None]
  - NEUROPATHY PERIPHERAL [None]
  - CARDIAC MURMUR [None]
  - EXPOSED BONE IN JAW [None]
  - ASTHMA [None]
  - BLOOD PRESSURE INCREASED [None]
  - VERTIGO [None]
  - LUMBAR SPINAL STENOSIS [None]
  - DIABETES MELLITUS [None]
  - COLON ADENOMA [None]
  - ANHEDONIA [None]
  - AORTIC VALVE SCLEROSIS [None]
  - TINNITUS [None]
  - LYMPHADENOPATHY [None]
  - BASAL CELL CARCINOMA [None]
  - SKIN LESION [None]
  - GENERAL PHYSICAL HEALTH DETERIORATION [None]
  - VENOUS THROMBOSIS [None]
  - THYROID NEOPLASM [None]
  - HEART VALVE INCOMPETENCE [None]
  - CAROTID BRUIT [None]
  - GOITRE [None]
  - VISION BLURRED [None]
  - BRONCHITIS [None]
  - HAEMORRHOIDS [None]
  - CATARACT [None]
